FAERS Safety Report 25448204 (Version 1)
Quarter: 2025Q2

REPORT INFORMATION
  Report Type: Spontaneous
  Country: US (occurrence: US)
  Receive Date: 20250617
  Receipt Date: 20250617
  Transmission Date: 20250717
  Serious: No
  Sender: ELI LILLY AND COMPANY
  Company Number: US-ELI_LILLY_AND_COMPANY-US202506011108

PATIENT
  Age: 69 Year

DRUGS (2)
  1. INSULIN LISPRO [Suspect]
     Active Substance: INSULIN LISPRO
     Indication: Diabetes mellitus
     Dosage: 24 U, EACH MORNING
     Route: 065
     Dates: start: 20250608
  2. INSULIN LISPRO [Suspect]
     Active Substance: INSULIN LISPRO
     Dosage: 26 U, EACH EVENING
     Route: 065
     Dates: start: 20250608

REACTIONS (2)
  - Incorrect dose administered [Unknown]
  - Device use issue [Unknown]

NARRATIVE: CASE EVENT DATE: 20250608
